FAERS Safety Report 22684423 (Version 4)
Quarter: 2023Q4

REPORT INFORMATION
  Report Type: Report from Study
  Country: US (occurrence: US)
  Receive Date: 20230710
  Receipt Date: 20231203
  Transmission Date: 20240109
  Serious: Yes (Hospitalization)
  Sender: FDA-Public Use
  Company Number: US-ABBVIE-5318369

PATIENT
  Age: 79 Year
  Sex: Male
  Weight: 60 kg

DRUGS (16)
  1. HUMIRA [Suspect]
     Active Substance: ADALIMUMAB
     Indication: Colitis ulcerative
     Route: 058
     Dates: start: 20170728, end: 201801
  2. VEDOLIZUMAB [Concomitant]
     Active Substance: VEDOLIZUMAB
     Indication: Colitis ulcerative
     Route: 040
     Dates: start: 201805
  3. LIDEX [Concomitant]
     Active Substance: FLUOCINONIDE
     Indication: Dermatitis
     Dosage: TIME INTERVAL: AS NECESSARY
     Route: 061
     Dates: start: 201907, end: 20230610
  4. AVODART [Concomitant]
     Active Substance: DUTASTERIDE
     Indication: Benign prostatic hyperplasia
     Route: 048
     Dates: start: 200809
  5. SIMETHICONE (DIMETHICONE) [Concomitant]
     Active Substance: DIMETHICONE
     Indication: Colitis ulcerative
     Route: 048
     Dates: start: 2008
  6. PLAVIX [Concomitant]
     Active Substance: CLOPIDOGREL BISULFATE
     Indication: Cerebrovascular accident prophylaxis
     Route: 048
     Dates: start: 2004
  7. ALLOPURINOL [Concomitant]
     Active Substance: ALLOPURINOL
     Indication: Gout
     Route: 048
     Dates: start: 201208
  8. CARVEDILOL [Concomitant]
     Active Substance: CARVEDILOL
     Indication: Hypertension
     Route: 048
     Dates: start: 2012
  9. LISINOPRIL [Concomitant]
     Active Substance: LISINOPRIL
     Indication: Hypertension
     Route: 048
     Dates: start: 20120301
  10. PRAVASTATIN [Concomitant]
     Active Substance: PRAVASTATIN
     Indication: Hyperlipidaemia
     Route: 048
     Dates: start: 20150109
  11. METAMUCIL [Concomitant]
     Active Substance: PLANTAGO SEED
     Indication: Colitis ulcerative
     Route: 048
     Dates: start: 201308
  12. VITAMIN D [Concomitant]
     Active Substance: VITAMIN D NOS
     Indication: Prophylaxis
     Route: 048
     Dates: start: 2010
  13. IRBESARTAN [Concomitant]
     Active Substance: IRBESARTAN
     Indication: Hypertension
     Route: 048
     Dates: start: 20230608
  14. FAMOTIDINE [Concomitant]
     Active Substance: FAMOTIDINE
     Indication: Gastrooesophageal reflux disease
     Route: 048
     Dates: start: 20211202
  15. LATANOPROST [Concomitant]
     Active Substance: LATANOPROST
     Indication: Glaucoma
     Dosage: DOSE:0.005 %
     Route: 047
     Dates: start: 20090317
  16. ZYRTEC [Concomitant]
     Active Substance: CETIRIZINE HYDROCHLORIDE
     Indication: Dermatitis
     Dosage: TIME INTERVAL: AS NECESSARY
     Route: 048
     Dates: start: 20190702, end: 20230608

REACTIONS (4)
  - Vertebral artery aneurysm [Recovered/Resolved]
  - Unevaluable event [Recovered/Resolved]
  - Cervical vertebral fracture [Recovered/Resolved]
  - Skull fractured base [Recovered/Resolved]

NARRATIVE: CASE EVENT DATE: 20230609
